FAERS Safety Report 14934695 (Version 1)
Quarter: 2018Q2

REPORT INFORMATION
  Report Type: Spontaneous
  Country: CZ (occurrence: CZ)
  Receive Date: 20180524
  Receipt Date: 20180524
  Transmission Date: 20180711
  Serious: Yes (Hospitalization, Other)
  Sender: FDA-Public Use
  Company Number: CZ-ALEMBIC PHARMACUETICALS LIMITED-2018SCAL000335

PATIENT

DRUGS (2)
  1. QUETIAPINE FUMARATE. [Suspect]
     Active Substance: QUETIAPINE FUMARATE
     Indication: SCHIZOPHRENIA
     Dosage: 800 MILLIGRAM, QD
  2. TISERCIN                           /00038601/ [Concomitant]
     Indication: SCHIZOPHRENIA
     Dosage: 125 MILLIGRAM

REACTIONS (17)
  - Pollakiuria [Recovered/Resolved]
  - Hypercholesterolaemia [Recovered/Resolved]
  - Diarrhoea [Recovered/Resolved]
  - Nausea [Recovered/Resolved]
  - Hyponatraemia [Recovered/Resolved]
  - Constipation [Recovered/Resolved]
  - Abdominal pain [Recovered/Resolved]
  - Dyspepsia [Recovered/Resolved]
  - Tachycardia [Recovered/Resolved]
  - Hypertriglyceridaemia [Recovered/Resolved]
  - Vertigo [Recovered/Resolved]
  - Hyperglycaemia [Recovered/Resolved]
  - Thirst [Recovered/Resolved]
  - Dyspnoea [Recovered/Resolved]
  - Pancreatitis acute [Recovered/Resolved]
  - Vomiting [Recovered/Resolved]
  - Hyperlipidaemia [Recovering/Resolving]
